FAERS Safety Report 4509199-X (Version None)
Quarter: 2004Q4

REPORT INFORMATION
  Report Type: 
  Country: None (occurrence: None)
  Receive Date: 20041123
  Receipt Date: 20041108
  Transmission Date: 20050328
  Serious: Yes (Death, Other)
  Sender: FDA-Public Use
  Company Number: US-MERCK-0411USA01417

PATIENT
  Age: 56 Year
  Sex: Male

DRUGS (11)
  1. INVANZ [Suspect]
     Indication: DIABETIC FOOT INFECTION
     Route: 042
     Dates: start: 20030401, end: 20030401
  2. ASPIRIN [Concomitant]
     Route: 065
  3. ZOCOR [Concomitant]
     Route: 065
  4. ROSIGLITAZONE MALEATE [Concomitant]
     Route: 065
  5. GLIPIZIDE [Concomitant]
     Route: 065
  6. METOPROLOL [Concomitant]
     Route: 065
  7. DOCUSATE SODIUM [Concomitant]
     Route: 065
  8. INSULIN [Concomitant]
     Route: 065
  9. EPOETIN [Concomitant]
     Route: 065
  10. PROPOFOL [Concomitant]
     Route: 065
     Dates: start: 20030401
  11. BUPIVACAINE HYDROCHLORIDE [Concomitant]
     Route: 041
     Dates: start: 20030401

REACTIONS (6)
  - CONVULSION [None]
  - DEATH [None]
  - FOOT AMPUTATION [None]
  - HYPERKALAEMIA [None]
  - HYPOCALCAEMIA [None]
  - MYOCARDIAL INFARCTION [None]
